FAERS Safety Report 6938389-1 (Version None)
Quarter: 2010Q3

REPORT INFORMATION
  Report Type: 
  Country: None (occurrence: None)
  Receive Date: 20100824
  Receipt Date: 20100818
  Transmission Date: 20110219
  Serious: Yes (Other)
  Sender: FDA-Public Use
  Company Number: US-PFIZER INC-2010104532

PATIENT
  Sex: Female

DRUGS (3)
  1. XALATAN [Suspect]
     Indication: GLAUCOMA
     Dosage: 1 DROP, 2X DAILY
     Route: 047
     Dates: start: 20010101
  2. XALATAN [Suspect]
     Dosage: 1DROP, 1X DAILY AT NIGHT
     Route: 047
     Dates: start: 20010101
  3. AZOPT [Suspect]
     Indication: INTRAOCULAR PRESSURE TEST
     Dosage: UNK
     Dates: start: 20100801

REACTIONS (6)
  - ARTERIAL OCCLUSIVE DISEASE [None]
  - BLOOD CHOLESTEROL INCREASED [None]
  - DRY EYE [None]
  - HAIR COLOUR CHANGES [None]
  - INTRAOCULAR PRESSURE INCREASED [None]
  - PALPITATIONS [None]
